FAERS Safety Report 8976938 (Version 2)
Quarter: 2013Q1

REPORT INFORMATION
  Report Type: Report from Study
  Country: US (occurrence: US)
  Receive Date: 20121220
  Receipt Date: 20130123
  Transmission Date: 20140127
  Serious: Yes (Death)
  Sender: FDA-Public Use
  Company Number: US-ACTELION-A-US2012-76467

PATIENT
  Age: 69 Year
  Sex: Male

DRUGS (2)
  1. TRACLEER [Suspect]
     Indication: PULMONARY ARTERIAL HYPERTENSION
     Route: 048
  2. PLAVIX [Concomitant]

REACTIONS (4)
  - Pulmonary embolism [Fatal]
  - Hypotension [Fatal]
  - Respiratory failure [Fatal]
  - Cor pulmonale [Fatal]
